FAERS Safety Report 21759776 (Version 1)
Quarter: 2022Q4

REPORT INFORMATION
  Report Type: Spontaneous
  Country: US (occurrence: None)
  Receive Date: 20221220
  Receipt Date: 20221220
  Transmission Date: 20230113
  Serious: Yes (Hospitalization)
  Sender: FDA-Public Use
  Company Number: None

PATIENT
  Sex: Female

DRUGS (1)
  1. HUMIRA [Suspect]
     Active Substance: ADALIMUMAB
     Indication: Psoriasis
     Dosage: 40 MG/0.4ML SUBCUTANEOUS??INJECT 40 MG UNDER THE SKIN (SUBCUTANEOUS INJECTION) EVERY OTHER WEEK? ?
     Route: 058
     Dates: start: 20210127

REACTIONS (2)
  - Surgery [None]
  - Therapy interrupted [None]
